FAERS Safety Report 9104226 (Version 3)
Quarter: 2013Q1

REPORT INFORMATION
  Report Type: Spontaneous
  Country: AU (occurrence: AU)
  Receive Date: 20130219
  Receipt Date: 20130326
  Transmission Date: 20140127
  Serious: Yes (Other)
  Sender: FDA-Public Use
  Company Number: PHHY2013AU003166

PATIENT
  Age: 49 Year
  Sex: Female
  Weight: 97 kg

DRUGS (4)
  1. GILENYA [Suspect]
     Indication: MULTIPLE SCLEROSIS
     Dosage: 0.5 MG, QD
     Route: 048
     Dates: start: 20110901, end: 20130121
  2. PROPAX [Concomitant]
     Route: 048
  3. EDRONAX [Concomitant]
     Route: 048
  4. ENDEP [Concomitant]
     Route: 048

REACTIONS (9)
  - Hepatocellular injury [Unknown]
  - Gamma-glutamyltransferase increased [Recovering/Resolving]
  - Alanine aminotransferase increased [Recovering/Resolving]
  - Aspartate aminotransferase increased [Recovering/Resolving]
  - Blood alkaline phosphatase increased [Recovering/Resolving]
  - Hepatic enzyme increased [Recovering/Resolving]
  - Weight increased [Not Recovered/Not Resolved]
  - Lymphopenia [Unknown]
  - White blood cell count decreased [Unknown]
